FAERS Safety Report 8160185-0 (Version None)
Quarter: 2012Q1

REPORT INFORMATION
  Report Type: 
  Country: None (occurrence: None)
  Receive Date: 20120223
  Receipt Date: 20120222
  Transmission Date: 20120608
  Serious: Yes (Death, Other)
  Sender: FDA-Public Use
  Company Number: JP-B.I. PHARMACEUTICALS,INC./RIDGEFIELD-2012-BP-03081NB

PATIENT
  Sex: Male
  Weight: 45 kg

DRUGS (4)
  1. PIPERACILLIN SODIUM [Concomitant]
     Indication: PNEUMONIA
     Dosage: 2 G
     Route: 042
     Dates: start: 20111102, end: 20111109
  2. RADICUT [Concomitant]
     Indication: CEREBRAL INFARCTION
     Dosage: 60 MG
     Route: 042
     Dates: start: 20111028, end: 20111110
  3. GLYCEOL [Concomitant]
     Indication: CEREBRAL INFARCTION
     Dosage: 600 ML
     Route: 042
     Dates: start: 20111102, end: 20111112
  4. PRADAXA [Suspect]
     Indication: CEREBRAL INFARCTION
     Dosage: 220 MG
     Route: 048
     Dates: start: 20111109, end: 20111116

REACTIONS (2)
  - ACUTE MYOCARDIAL INFARCTION [None]
  - HAEMORRHAGIC CEREBRAL INFARCTION [None]
